FAERS Safety Report 5591246-8 (Version None)
Quarter: 2008Q1

REPORT INFORMATION
  Report Type: 
  Country: None (occurrence: None)
  Receive Date: 20080110
  Receipt Date: 20080110
  Transmission Date: 20080703
  Serious: Yes (Hospitalization, Disabling)
  Sender: FDA-Public Use
  Company Number: None

PATIENT
  Age: 20 Year
  Sex: Male
  Weight: 74.8435 kg

DRUGS (5)
  1. CHANTIX [Suspect]
     Indication: SMOKING CESSATION THERAPY
     Dosage: 1MG 2X DAILY PO 2-3 WEEKS JAN 2008
     Route: 048
     Dates: start: 20071215, end: 20071231
  2. CHANTIX [Suspect]
     Indication: SMOKING CESSATION THERAPY
     Dosage: .5 2X DAILY PO
     Route: 048
     Dates: start: 20071122, end: 20071214
  3. PROZAC [Concomitant]
  4. XANAX [Concomitant]
  5. ADDERALL 10 [Concomitant]

REACTIONS (8)
  - ABNORMAL BEHAVIOUR [None]
  - AGGRESSION [None]
  - ALCOHOL USE [None]
  - CIRCADIAN RHYTHM SLEEP DISORDER [None]
  - CONDITION AGGRAVATED [None]
  - DEPRESSION [None]
  - SOCIAL AVOIDANT BEHAVIOUR [None]
  - SUICIDE ATTEMPT [None]
